FAERS Safety Report 22000451 (Version 1)
Quarter: 2023Q1

REPORT INFORMATION
  Report Type: Spontaneous
  Country: US (occurrence: None)
  Receive Date: 20230215
  Receipt Date: 20230215
  Transmission Date: 20230418
  Serious: Yes (Disabling)
  Sender: FDA-Public Use
  Company Number: None

PATIENT
  Age: 68 Year
  Sex: Male
  Weight: 74.25 kg

DRUGS (3)
  1. FINASTERIDE [Suspect]
     Active Substance: FINASTERIDE
     Indication: Benign prostatic hyperplasia
  2. ATORVASTATIN [Concomitant]
     Active Substance: ATORVASTATIN
  3. Centrum daily multi vitamin [Concomitant]

REACTIONS (10)
  - Tinnitus [None]
  - Anxiety [None]
  - Depression [None]
  - Amnesia [None]
  - Disturbance in attention [None]
  - Impaired work ability [None]
  - Feeling abnormal [None]
  - Visual impairment [None]
  - Sleep disorder [None]
  - Sleep apnoea syndrome [None]

NARRATIVE: CASE EVENT DATE: 20220801
